FAERS Safety Report 13249889 (Version 3)
Quarter: 2018Q1

REPORT INFORMATION
  Report Type: Spontaneous
  Country: JP (occurrence: JP)
  Receive Date: 20170218
  Receipt Date: 20180120
  Transmission Date: 20180508
  Serious: Yes (Hospitalization, Other)
  Sender: FDA-Public Use
  Company Number: JP-AMGEN-JPNSP2017026043

PATIENT
  Age: 74 Year
  Sex: Male

DRUGS (6)
  1. SYNTHETIC ANTIBACTERIALS [Concomitant]
     Active Substance: UNSPECIFIED INGREDIENT
     Indication: FEBRILE NEUTROPENIA
     Dosage: UNK
     Route: 065
  2. GRAN [Suspect]
     Active Substance: FILGRASTIM
     Indication: FEBRILE NEUTROPENIA
     Dosage: UNK
     Route: 065
  3. 5-FU                               /00098801/ [Suspect]
     Active Substance: FLUOROURACIL
     Indication: OROPHARYNGEAL CANCER
     Dosage: UNK
     Route: 041
  4. DOCETAXEL. [Suspect]
     Active Substance: DOCETAXEL
     Indication: OROPHARYNGEAL CANCER
     Dosage: UNK
     Route: 041
  5. CISPLATIN. [Suspect]
     Active Substance: CISPLATIN
     Indication: OROPHARYNGEAL CANCER
     Dosage: UNK
     Route: 041
  6. G-LASTA [Suspect]
     Active Substance: PEGFILGRASTIM
     Indication: FEBRILE NEUTROPENIA
     Dosage: UNK
     Route: 058

REACTIONS (5)
  - Intestinal ischaemia [Recovered/Resolved]
  - Febrile neutropenia [Unknown]
  - Renal impairment [Unknown]
  - C-reactive protein increased [Unknown]
  - White blood cell count decreased [Unknown]
